FAERS Safety Report 6379325-9 (Version None)
Quarter: 2009Q3

REPORT INFORMATION
  Report Type: 
  Country: None (occurrence: None)
  Receive Date: 20090928
  Receipt Date: 20090918
  Transmission Date: 20100115
  Serious: Yes (Other)
  Sender: FDA-Public Use
  Company Number: US-ELI_LILLY_AND_COMPANY-US200909004906

PATIENT
  Age: 54 Year
  Sex: Female

DRUGS (4)
  1. ALIMTA [Suspect]
     Indication: NON-SMALL CELL LUNG CANCER
     Dosage: 500 MG/M2, UNK
     Route: 042
  2. GEMZAR [Suspect]
     Indication: NON-SMALL CELL LUNG CANCER
  3. AVASTIN [Concomitant]
     Indication: NON-SMALL CELL LUNG CANCER
  4. CARBOPLATIN [Concomitant]
     Indication: NON-SMALL CELL LUNG CANCER

REACTIONS (4)
  - DISSEMINATED INTRAVASCULAR COAGULATION [None]
  - HYPERSENSITIVITY [None]
  - THROMBOCYTOPENIA [None]
  - WHITE BLOOD CELL COUNT DECREASED [None]
